FAERS Safety Report 10705290 (Version 1)
Quarter: 2015Q1

REPORT INFORMATION
  Report Type: Spontaneous
  Country: US (occurrence: US)
  Receive Date: 20150112
  Receipt Date: 20150112
  Transmission Date: 20150721
  Serious: Yes (Death)
  Sender: FDA-Public Use
  Company Number: US-BAYER-2015-002714

PATIENT
  Age: 44 Year
  Sex: Male

DRUGS (7)
  1. HEROIN [Suspect]
     Active Substance: DIACETYLMORPHINE
  2. ROMILAR [Suspect]
     Active Substance: DEXTROMETHORPHAN HYDROBROMIDE
  3. COCAINE [Suspect]
     Active Substance: COCAINE
  4. CODEINE [Suspect]
     Active Substance: CODEINE
  5. ACETAMINOPHEN. [Suspect]
     Active Substance: ACETAMINOPHEN
  6. HYDROCODONE [Suspect]
     Active Substance: HYDROCODONE
  7. OXYCODONE [Suspect]
     Active Substance: OXYCODONE

REACTIONS (1)
  - Drug abuse [Fatal]
